FAERS Safety Report 6340763-1 (Version None)
Quarter: 2009Q3

REPORT INFORMATION
  Report Type: 
  Country: None (occurrence: None)
  Receive Date: 20090904
  Receipt Date: 20090902
  Transmission Date: 20100115
  Serious: Yes (Hospitalization)
  Sender: FDA-Public Use
  Company Number: US-AMGEN-US358514

PATIENT
  Sex: Male
  Weight: 80.8 kg

DRUGS (12)
  1. NPLATE [Suspect]
     Indication: IDIOPATHIC THROMBOCYTOPENIC PURPURA
     Route: 058
     Dates: start: 20090605, end: 20090717
  2. PREDNISONE [Concomitant]
  3. METFORMIN HCL [Concomitant]
  4. DANAZOL [Concomitant]
  5. PROTONIX [Concomitant]
  6. LEVOTHYROXINE [Concomitant]
  7. ANALAPRIL [Concomitant]
  8. LANTUS [Concomitant]
  9. ZETIA [Concomitant]
  10. CLONAZEPAM [Concomitant]
  11. PRAVACHOL [Concomitant]
  12. RISPERDAL [Concomitant]

REACTIONS (1)
  - THERAPEUTIC RESPONSE DECREASED [None]
